FAERS Safety Report 12620926 (Version 1)
Quarter: 2016Q3

REPORT INFORMATION
  Report Type: Spontaneous
  Country: US (occurrence: None)
  Receive Date: 20160803
  Receipt Date: 20160803
  Transmission Date: 20161109
  Serious: No
  Sender: FDA-Public Use
  Company Number: None

PATIENT
  Sex: Male

DRUGS (2)
  1. GABAPENTIN. [Suspect]
     Active Substance: GABAPENTIN
  2. ENALAPRIL [Suspect]
     Active Substance: ENALAPRIL

REACTIONS (2)
  - Dysgraphia [None]
  - Cerebrovascular accident [None]
